FAERS Safety Report 7012809-9 (Version None)
Quarter: 2010Q3

REPORT INFORMATION
  Report Type: 
  Country: None (occurrence: None)
  Receive Date: 20100924
  Receipt Date: 20100913
  Transmission Date: 20110219
  Serious: No
  Sender: FDA-Public Use
  Company Number: B0669422A

PATIENT
  Sex: Female

DRUGS (7)
  1. LAMICTAL [Suspect]
     Indication: PRODUCT USED FOR UNKNOWN INDICATION
     Dosage: 25MG TWICE PER DAY
     Route: 048
     Dates: start: 20100715, end: 20100729
  2. DEPAKENE [Concomitant]
     Indication: EPILEPSY
     Dosage: 800MG PER DAY
     Route: 048
  3. FOLIAMIN [Concomitant]
     Indication: PROPHYLAXIS
     Dosage: 5MG PER DAY
     Route: 048
  4. METHYLCOBAL [Concomitant]
     Indication: PROPHYLAXIS
     Dosage: 500MCG PER DAY
     Route: 048
  5. CALONAL [Concomitant]
     Indication: HEADACHE
     Route: 048
  6. TRANEXAMIC ACID [Concomitant]
     Indication: NASOPHARYNGITIS
     Dosage: 750MG PER DAY
     Route: 048
  7. MUCODYNE [Concomitant]
     Indication: NASOPHARYNGITIS
     Dosage: 600MG PER DAY
     Route: 048

REACTIONS (4)
  - HEADACHE [None]
  - HEPATIC FUNCTION ABNORMAL [None]
  - PYREXIA [None]
  - RASH [None]
